FAERS Safety Report 10166150 (Version 1)
Quarter: 2014Q2

REPORT INFORMATION
  Report Type: Spontaneous
  Country: US (occurrence: US)
  Receive Date: 20140512
  Receipt Date: 20140512
  Transmission Date: 20141212
  Serious: Yes (Hospitalization)
  Sender: FDA-Public Use
  Company Number: US-BIOGENIDEC-2014BI043564

PATIENT
  Age: 63 Year
  Sex: Female

DRUGS (1)
  1. AVONEX [Suspect]
     Indication: MULTIPLE SCLEROSIS
     Route: 030
     Dates: start: 19960901

REACTIONS (6)
  - Surgery [Not Recovered/Not Resolved]
  - Infection [Unknown]
  - Dehydration [Unknown]
  - General symptom [Unknown]
  - Vomiting [Not Recovered/Not Resolved]
  - Asthenia [Unknown]
